FAERS Safety Report 7791469-3 (Version None)
Quarter: 2011Q3

REPORT INFORMATION
  Report Type: 
  Country: None (occurrence: None)
  Receive Date: 20110930
  Receipt Date: 20110930
  Transmission Date: 20111222
  Serious: Yes (Disabling)
  Sender: FDA-Public Use
  Company Number: None

PATIENT
  Sex: Male
  Weight: 64.4108 kg

DRUGS (1)
  1. HORIZANT [Suspect]
     Indication: RESTLESS LEGS SYNDROME
     Dosage: 600MG 1 TABLET ORAL
     Route: 048

REACTIONS (9)
  - NAUSEA [None]
  - HYPERSOMNIA [None]
  - ACTIVITIES OF DAILY LIVING IMPAIRED [None]
  - READING DISORDER [None]
  - VERTIGO [None]
  - SPEECH DISORDER [None]
  - FEELING ABNORMAL [None]
  - FALL [None]
  - HEADACHE [None]
